FAERS Safety Report 23181700 (Version 1)
Quarter: 2023Q4

REPORT INFORMATION
  Report Type: Spontaneous
  Country: US (occurrence: None)
  Receive Date: 20231114
  Receipt Date: 20231114
  Transmission Date: 20240109
  Serious: Yes (Hospitalization, Other)
  Sender: FDA-Public Use
  Company Number: 2023A252640

PATIENT
  Sex: Female

DRUGS (1)
  1. FASLODEX [Suspect]
     Active Substance: FULVESTRANT
     Route: 030

REACTIONS (8)
  - Flank pain [Unknown]
  - Pain [Unknown]
  - Gait disturbance [Unknown]
  - Administration site discharge [Unknown]
  - Injection site pain [Unknown]
  - Hot flush [Unknown]
  - Device malfunction [Unknown]
  - Incorrect product administration duration [Unknown]
